FAERS Safety Report 11102153 (Version 4)
Quarter: 2015Q2

REPORT INFORMATION
  Report Type: Report from Study
  Country: CA (occurrence: CA)
  Receive Date: 20150511
  Receipt Date: 20150522
  Transmission Date: 20150821
  Serious: Yes (Other)
  Sender: FDA-Public Use
  Company Number: CA-ROCHE-1571991

PATIENT
  Age: 55 Year
  Sex: Male
  Weight: 84.5 kg

DRUGS (13)
  1. METHYLPREDNISOLONE. [Suspect]
     Active Substance: METHYLPREDNISOLONE
     Indication: PRODUCT USED FOR UNKNOWN INDICATION
     Route: 042
     Dates: start: 20150428, end: 20150505
  2. WARFARIN [Concomitant]
     Active Substance: WARFARIN
     Dosage: DOSE FLUCTUATIONS
     Route: 065
  3. RAMIPRIL. [Concomitant]
     Active Substance: RAMIPRIL
  4. VITAMIN B12 [Concomitant]
     Active Substance: CYANOCOBALAMIN
  5. ALENDRONATE [Concomitant]
     Active Substance: ALENDRONATE SODIUM
  6. FOLIC ACID. [Concomitant]
     Active Substance: FOLIC ACID
  7. ACETAMINOPHEN. [Concomitant]
     Active Substance: ACETAMINOPHEN
     Indication: PREMEDICATION
     Route: 048
     Dates: start: 20150428
  8. PREDNISONE. [Concomitant]
     Active Substance: PREDNISONE
  9. RITUXAN [Suspect]
     Active Substance: RITUXIMAB
     Indication: AUTOIMMUNE HAEMOLYTIC ANAEMIA
     Dosage: LAST DOSE OF RITUXIMAB: 28/APR/2015, 05/MAY/2015 AND 12/MAY/2015.
     Route: 042
     Dates: start: 20150428
  10. DIPHENHYDRAMINE HCL [Concomitant]
     Active Substance: DIPHENHYDRAMINE HYDROCHLORIDE
     Indication: PREMEDICATION
     Route: 048
     Dates: start: 20150428
  11. METFORMIN [Concomitant]
     Active Substance: METFORMIN HYDROCHLORIDE
  12. AMLODIPINE [Concomitant]
     Active Substance: AMLODIPINE BESYLATE
  13. INDAPAMIDE. [Concomitant]
     Active Substance: INDAPAMIDE

REACTIONS (5)
  - Rash [Recovered/Resolved]
  - Blood glucose increased [Recovering/Resolving]
  - Off label use [Unknown]
  - Blood glucose abnormal [Not Recovered/Not Resolved]
  - Insomnia [Not Recovered/Not Resolved]

NARRATIVE: CASE EVENT DATE: 20150428
